FAERS Safety Report 10660888 (Version 1)
Quarter: 2014Q4

REPORT INFORMATION
  Report Type: Spontaneous
  Country: IN (occurrence: IN)
  Receive Date: 20141218
  Receipt Date: 20141218
  Transmission Date: 20150529
  Serious: Yes (Other)
  Sender: FDA-Public Use
  Company Number: IN-AUROBINDO-AUR-APL-2014-12901

PATIENT
  Age: 30 Year
  Sex: Male

DRUGS (2)
  1. ALPRAZOLAM TABLETS [Interacting]
     Active Substance: ALPRAZOLAM
     Dosage: 5 MG, ONCE A DAY
     Route: 065
  2. ALPRAZOLAM TABLETS [Suspect]
     Active Substance: ALPRAZOLAM
     Indication: PRODUCT USED FOR UNKNOWN INDICATION
     Dosage: 0.5 MG, DAILY
     Route: 065

REACTIONS (17)
  - Aggression [Recovered/Resolved]
  - Insomnia [Recovered/Resolved]
  - Substance-induced psychotic disorder [Recovered/Resolved]
  - Drug abuse [Unknown]
  - Catatonia [Recovered/Resolved]
  - Hallucination, auditory [Recovered/Resolved]
  - Posturing [Recovered/Resolved]
  - Abnormal behaviour [Recovered/Resolved]
  - Diet refusal [Recovered/Resolved]
  - Drug dependence [Recovered/Resolved]
  - Suspiciousness [Recovered/Resolved]
  - Agitation [Recovered/Resolved]
  - Motor dysfunction [Recovered/Resolved]
  - Staring [Recovered/Resolved]
  - Fear [Recovered/Resolved]
  - Alcohol interaction [Recovered/Resolved]
  - Negativism [Recovered/Resolved]
